FAERS Safety Report 7078181-3 (Version None)
Quarter: 2010Q4

REPORT INFORMATION
  Report Type: 
  Country: None (occurrence: None)
  Receive Date: 20101101
  Receipt Date: 20101101
  Transmission Date: 20110411
  Serious: Yes (Hospitalization)
  Sender: FDA-Public Use
  Company Number: None

PATIENT
  Age: 80 Year
  Sex: Female

DRUGS (10)
  1. ULTRACET [Suspect]
     Indication: PAIN
     Dosage: ULTRACET 37.5MG 3 TIMES DAILY PRN PO
     Route: 048
     Dates: start: 20100311, end: 20100401
  2. SERTRALINE HYDROCHLORIDE [Concomitant]
  3. CLOPIDOGREL [Concomitant]
  4. AMLODIPINE [Concomitant]
  5. PRAVASTATIN [Concomitant]
  6. LOTENSIN [Concomitant]
  7. ASPIRIN [Concomitant]
  8. MEGESTROL ACETATE [Concomitant]
  9. ACETAMINOPHEN [Concomitant]
  10. HEMOCYTE PLUS [Concomitant]

REACTIONS (2)
  - DRUG DOSE OMISSION [None]
  - GRAND MAL CONVULSION [None]
